FAERS Safety Report 18709368 (Version 1)
Quarter: 2021Q1

REPORT INFORMATION
  Report Type: Spontaneous
  Country: US (occurrence: US)
  Receive Date: 20210107
  Receipt Date: 20210107
  Transmission Date: 20210419
  Serious: Yes (Hospitalization, Other)
  Sender: FDA-Public Use
  Company Number: US-DRREDDYS-USA/USA/20/0130612

PATIENT
  Age: 31 Year
  Sex: Male

DRUGS (1)
  1. LAMOTRIGINE TABLETS [Suspect]
     Active Substance: LAMOTRIGINE
     Indication: PRODUCT USED FOR UNKNOWN INDICATION

REACTIONS (4)
  - Drug hypersensitivity [Recovered/Resolved]
  - Drug-induced liver injury [Recovered/Resolved]
  - Encephalopathy [Recovered/Resolved]
  - Haemophagocytic lymphohistiocytosis [Recovered/Resolved]
